FAERS Safety Report 9239875 (Version 1)
Quarter: 2013Q2

REPORT INFORMATION
  Report Type: Spontaneous
  Country: US (occurrence: US)
  Receive Date: 20130418
  Receipt Date: 20130418
  Transmission Date: 20140414
  Serious: Yes (Hospitalization)
  Sender: FDA-Public Use
  Company Number: US-BAXTER-2013BAX012954

PATIENT
  Sex: Female

DRUGS (1)
  1. DIANEAL LOW CALCIUM [Suspect]
     Indication: PERITONEAL DIALYSIS
     Route: 033

REACTIONS (5)
  - Fall [Recovered/Resolved]
  - Head injury [Recovered/Resolved]
  - Headache [Unknown]
  - Confusional state [Not Recovered/Not Resolved]
  - Fatigue [Unknown]
